FAERS Safety Report 9708817 (Version 2)
Quarter: 2014Q1

REPORT INFORMATION
  Report Type: Spontaneous
  Country: FR (occurrence: None)
  Receive Date: 20131122
  Receipt Date: 20140103
  Transmission Date: 20141002
  Serious: Yes (Hospitalization)
  Sender: FDA-Public Use
  Company Number: SYM-2013-12990

PATIENT
  Age: 50 Year
  Sex: Male

DRUGS (5)
  1. DILTIAZEM HYDROCHLORIDE [Suspect]
     Indication: SUICIDE ATTEMPT
     Route: 048
     Dates: start: 19900116, end: 19900116
  2. TRANXENE [Suspect]
     Indication: SUICIDE ATTEMPT
     Route: 048
     Dates: start: 19900116, end: 19900116
  3. NORDAZEPAM [Suspect]
     Indication: SUICIDE ATTEMPT
     Route: 048
     Dates: start: 19900116, end: 19900116
  4. SINTROM [Suspect]
     Indication: SUICIDE ATTEMPT
     Route: 048
     Dates: start: 19900116, end: 19900116
  5. RISORDAN [Suspect]
     Indication: SUICIDE ATTEMPT
     Route: 048
     Dates: start: 19900116, end: 19900116

REACTIONS (5)
  - Suicide attempt [None]
  - Bradycardia [None]
  - Left ventricular failure [None]
  - Circulatory collapse [None]
  - Intentional overdose [None]
